FAERS Safety Report 19782318 (Version 1)
Quarter: 2021Q3

REPORT INFORMATION
  Report Type: Spontaneous
  Country: US (occurrence: US)
  Receive Date: 20210902
  Receipt Date: 20210902
  Transmission Date: 20211014
  Serious: No
  Sender: FDA-Public Use
  Company Number: US-ENDO PHARMACEUTICALS INC-2021-002617

PATIENT
  Sex: Male

DRUGS (6)
  1. PREDNISONE. [Suspect]
     Active Substance: PREDNISONE
     Dosage: 50 MG, UNK
     Route: 065
     Dates: start: 20210407
  2. PREDNISONE. [Suspect]
     Active Substance: PREDNISONE
     Dosage: 10 MG, 3 TABLETS THE SECOND DAY, UNKNOWN
     Route: 065
     Dates: start: 20210406
  3. PREDNISONE. [Suspect]
     Active Substance: PREDNISONE
     Dosage: 10 MG, 2 TABLETS THE THIRD DAY, UNKNOWN
     Route: 065
     Dates: start: 20210407
  4. PREDNISONE. [Suspect]
     Active Substance: PREDNISONE
     Indication: HYPERSENSITIVITY
     Dosage: 10 MG, 4 TABLETS, THE FIRST DAY, UNKNOWN
     Route: 065
     Dates: start: 20210405
  5. PREDNISONE. [Suspect]
     Active Substance: PREDNISONE
     Dosage: 10 MG, 1 TABLET AFTER THAT, UNKNOWN
     Route: 065
  6. COVID?19 VACCINE NOS. [Suspect]
     Active Substance: COVID-19 VACCINE NOS
     Indication: COVID-19 PROPHYLAXIS
     Dosage: UNK UNKNOWN, SINGLE
     Route: 065
     Dates: start: 20210326, end: 20210326

REACTIONS (6)
  - Peripheral swelling [Recovered/Resolved]
  - Pruritus [Recovered/Resolved]
  - Oesophageal pain [Recovered/Resolved]
  - Rash [Recovering/Resolving]
  - Urticaria [Recovering/Resolving]
  - Throat irritation [Recovered/Resolved]

NARRATIVE: CASE EVENT DATE: 20210406
